FAERS Safety Report 17160495 (Version 1)
Quarter: 2019Q4

REPORT INFORMATION
  Report Type: Report from Study
  Country: US (occurrence: US)
  Receive Date: 20191216
  Receipt Date: 20191216
  Transmission Date: 20200122
  Serious: Yes (Other)
  Sender: FDA-Public Use
  Company Number: US-SHIRE-US201943211

PATIENT

DRUGS (1)
  1. NATPARA (PARATHYROID HORMONE) [Suspect]
     Active Substance: PARATHYROID HORMONE
     Indication: PRODUCT USED FOR UNKNOWN INDICATION
     Route: 065

REACTIONS (8)
  - Headache [Unknown]
  - Condition aggravated [Unknown]
  - Nephrolithiasis [Unknown]
  - Hypoparathyroidism [Unknown]
  - Withdrawal syndrome [Unknown]
  - Recalled product [Unknown]
  - Feeling abnormal [Unknown]
  - Pain [Unknown]
